FAERS Safety Report 4470987-X (Version None)
Quarter: 2004Q4

REPORT INFORMATION
  Report Type: 
  Country: None (occurrence: None)
  Receive Date: 20041011
  Receipt Date: 20041005
  Transmission Date: 20050328
  Serious: Yes (Other)
  Sender: FDA-Public Use
  Company Number: FR-BRISTOL-MYERS SQUIBB COMPANY-12724878

PATIENT
  Age: 42 Year
  Sex: Male

DRUGS (4)
  1. ELISOR [Suspect]
     Route: 048
     Dates: start: 20040901, end: 20040925
  2. PLAVIX [Suspect]
     Indication: MYOCARDIAL INFARCTION
     Route: 048
  3. TENORMIN [Concomitant]
  4. KARDEGIC [Concomitant]

REACTIONS (2)
  - BLOOD CREATINE PHOSPHOKINASE INCREASED [None]
  - TENDONITIS [None]
